FAERS Safety Report 7128676-9 (Version None)
Quarter: 2010Q4

REPORT INFORMATION
  Report Type: 
  Country: None (occurrence: None)
  Receive Date: 20101130
  Receipt Date: 20101118
  Transmission Date: 20110411
  Serious: Yes (Other)
  Sender: FDA-Public Use
  Company Number: US-ROCHE-722757

PATIENT
  Sex: Female
  Weight: 43.5 kg

DRUGS (2)
  1. ACCUTANE [Suspect]
     Indication: ACNE
     Route: 065
     Dates: start: 19820801, end: 19830101
  2. NORETHINDRONE AND ETHINYL ESTRADIOL [Concomitant]
     Dosage: DRUG NAME- NECON 1/35
     Dates: start: 19730101, end: 20090101

REACTIONS (7)
  - ANAL FISSURE [None]
  - CROHN'S DISEASE [None]
  - DEPRESSION [None]
  - GASTROINTESTINAL INJURY [None]
  - INFLAMMATORY BOWEL DISEASE [None]
  - INTESTINAL OBSTRUCTION [None]
  - NEPHROLITHIASIS [None]
